FAERS Safety Report 16734080 (Version 1)
Quarter: 2019Q3

REPORT INFORMATION
  Report Type: Spontaneous
  Country: US (occurrence: US)
  Receive Date: 20190823
  Receipt Date: 20190823
  Transmission Date: 20191005
  Serious: No
  Sender: FDA-Public Use
  Company Number: US-ALLERGAN-1909191US

PATIENT
  Sex: Female
  Weight: 83.91 kg

DRUGS (1)
  1. CITALOPRAM HYDROBROMIDE - BP [Suspect]
     Active Substance: CITALOPRAM HYDROBROMIDE
     Indication: DEPRESSION
     Dosage: 20 MG, QD
     Route: 065
     Dates: end: 20181027

REACTIONS (1)
  - Drug ineffective [Unknown]
